FAERS Safety Report 14966835 (Version 1)
Quarter: 2018Q2

REPORT INFORMATION
  Report Type: Spontaneous
  Country: SE (occurrence: SE)
  Receive Date: 20180604
  Receipt Date: 20180604
  Transmission Date: 20180711
  Serious: Yes (Life-Threatening, Hospitalization)
  Sender: FDA-Public Use
  Company Number: SE-CHEPLA-2017-005165

PATIENT
  Age: 40 Year
  Sex: Male

DRUGS (3)
  1. IMOVANE [Suspect]
     Active Substance: ZOPICLONE
     Dates: start: 20170726, end: 20170726
  2. IBUMETIN [Suspect]
     Active Substance: IBUPROFEN
     Dates: start: 20170726, end: 20170726
  3. XENICAL [Suspect]
     Active Substance: ORLISTAT
     Indication: PRODUCT USED FOR UNKNOWN INDICATION
     Dates: start: 20170726, end: 20170726

REACTIONS (5)
  - Body temperature decreased [Unknown]
  - Somnolence [Unknown]
  - Toxicity to various agents [Unknown]
  - Respiratory arrest [Unknown]
  - Intentional overdose [Unknown]

NARRATIVE: CASE EVENT DATE: 20170726
